FAERS Safety Report 16852982 (Version 1)
Quarter: 2019Q3

REPORT INFORMATION
  Report Type: Spontaneous
  Country: US (occurrence: US)
  Receive Date: 20190925
  Receipt Date: 20190925
  Transmission Date: 20191005
  Serious: No
  Sender: FDA-Public Use
  Company Number: US-TEVA-2019-US-1111437

PATIENT
  Sex: Female

DRUGS (1)
  1. POTASSIUM CHLORIDE XR [Suspect]
     Active Substance: POTASSIUM CHLORIDE
     Route: 065
     Dates: start: 20190703

REACTIONS (3)
  - Diarrhoea [Unknown]
  - Abdominal pain upper [Unknown]
  - Product substitution issue [Unknown]
